FAERS Safety Report 5085710-8 (Version None)
Quarter: 2006Q3

REPORT INFORMATION
  Report Type: 
  Country: None (occurrence: None)
  Receive Date: 20060727
  Receipt Date: 20060627
  Transmission Date: 20061208
  Serious: Yes (Other)
  Sender: FDA-Public Use
  Company Number: 2006082756

PATIENT
  Sex: 0

DRUGS (1)
  1. LYRICA [Suspect]
     Indication: DRUG USE FOR UNKNOWN INDICATION

REACTIONS (9)
  - ABDOMINAL DISTENSION [None]
  - ABDOMINAL PAIN [None]
  - BACK PAIN [None]
  - DERMATITIS [None]
  - DIARRHOEA [None]
  - FAECES HARD [None]
  - HAEMATOCHEZIA [None]
  - MUCOUS STOOLS [None]
  - NAUSEA [None]
